FAERS Safety Report 9822922 (Version 3)
Quarter: 2015Q3

REPORT INFORMATION
  Report Type: Spontaneous
  Country: US (occurrence: US)
  Receive Date: 20140116
  Receipt Date: 20150806
  Transmission Date: 20151125
  Serious: No
  Sender: FDA-Public Use
  Company Number: US-GILEAD-2010-0031772

PATIENT
  Age: 73 Year
  Sex: Female
  Weight: 74.84 kg

DRUGS (19)
  1. ZOLOFT [Concomitant]
     Active Substance: SERTRALINE HYDROCHLORIDE
  2. CENTRUM SILVER [Concomitant]
     Active Substance: VITAMINS
  3. FISH OIL [Concomitant]
     Active Substance: FISH OIL
  4. BIOTIN [Concomitant]
     Active Substance: BIOTIN
  5. NORVASC [Concomitant]
     Active Substance: AMLODIPINE BESYLATE
  6. COUMADIN [Concomitant]
     Active Substance: WARFARIN SODIUM
  7. PRAVACHOL [Concomitant]
     Active Substance: PRAVASTATIN SODIUM
  8. CITRACAL-D [Concomitant]
  9. TENORMIN [Concomitant]
     Active Substance: ATENOLOL
  10. ASPIRIN. [Concomitant]
     Active Substance: ASPIRIN
  11. POTASSIUM CHLORIDE. [Concomitant]
     Active Substance: POTASSIUM CHLORIDE
  12. LETAIRIS [Suspect]
     Active Substance: AMBRISENTAN
     Indication: PULMONARY ARTERIAL HYPERTENSION
     Route: 048
     Dates: start: 20100818, end: 201010
  13. LOPID [Concomitant]
     Active Substance: GEMFIBROZIL
  14. NEURONTIN [Concomitant]
     Active Substance: GABAPENTIN
  15. PRILOSEC [Concomitant]
     Active Substance: OMEPRAZOLE MAGNESIUM
  16. PARACETAMOL/HYDROCODONE BITARTRATE [Concomitant]
  17. VIAGRA [Concomitant]
     Active Substance: SILDENAFIL CITRATE
  18. LASIX [Concomitant]
     Active Substance: FUROSEMIDE
  19. IRON [Concomitant]
     Active Substance: IRON

REACTIONS (3)
  - Peripheral swelling [Unknown]
  - Dyspnoea [Unknown]
  - Fatigue [Unknown]
